FAERS Safety Report 7963413-7 (Version None)
Quarter: 2011Q4

REPORT INFORMATION
  Report Type: 
  Country: None (occurrence: None)
  Receive Date: 20111205
  Receipt Date: 20111117
  Transmission Date: 20120403
  Serious: Yes (Disabling, Other)
  Sender: FDA-Public Use
  Company Number: 1000024473

PATIENT
  Age: 85 Year
  Sex: Male

DRUGS (11)
  1. SENNARIDE (SENNOSIDE A+B) (SENNOSIDE A+B) [Concomitant]
  2. MEMANTINE HYDROCHLORIDE [Suspect]
     Indication: DEMENTIA ALZHEIMER'S TYPE
     Dosage: 5 MG (5 MG, 1 IN 1 D), ORAL
     Route: 048
     Dates: start: 20110819, end: 20110829
  3. ZOLPIDEM TARTRATE [Suspect]
     Indication: INSOMNIA
     Dosage: 5 MG (5 MG, 1 IN 1 D), ORAL
     Route: 048
     Dates: start: 20110817, end: 20110912
  4. MAGMITT (MAGNESIUM OXIDE) (MAGNESIUM OXIDE) [Concomitant]
  5. GASMOTIN (MOSAPRIDE CITRATE) (MOSAPRIDE CITRATE) [Concomitant]
  6. FIRSTCIN (CEFOZOPRAN HYDROCHLORIDE) (CEFOZOPRAN HYDROCHLORIDE) [Concomitant]
  7. MEMANTINE HYDROCHLORIDE [Suspect]
     Indication: DEMENTIA ALZHEIMER'S TYPE
     Dosage: 15 MG (15 MG, 1 IN 1 D), ORAL
     Route: 048
     Dates: start: 20110906, end: 20110912
  8. GLUCOSE (GLUCOSE) (5 PERCENT) (GLUCOSE) [Concomitant]
  9. GASCON (DIMETICONE) (DIMETICONE) [Concomitant]
  10. KMNG NO. 3 (CALCIUM GLUCONATE/MAGNESIUM CARBONATE/POTASSIUM CHLORIDE/S [Concomitant]
  11. BEASLIMIN (LYO-DIAMIN) (LYO-DIAMIN) [Concomitant]

REACTIONS (7)
  - HAEMOGLOBIN DECREASED [None]
  - CONTUSION [None]
  - RHABDOMYOLYSIS [None]
  - HAEMATOCRIT DECREASED [None]
  - BLOOD POTASSIUM DECREASED [None]
  - FALL [None]
  - DEPRESSED LEVEL OF CONSCIOUSNESS [None]
